FAERS Safety Report 6025674-3 (Version None)
Quarter: 2008Q4

REPORT INFORMATION
  Report Type: 
  Country: None (occurrence: None)
  Receive Date: 20081231
  Receipt Date: 20081218
  Transmission Date: 20090506
  Serious: Yes (Hospitalization)
  Sender: FDA-Public Use
  Company Number: GB-CELGENEUS-167-21880-08111434

PATIENT
  Sex: Male

DRUGS (1)
  1. REVLIMID [Suspect]
     Indication: MANTLE CELL LYMPHOMA
     Route: 048
     Dates: start: 20081119

REACTIONS (5)
  - ARTHRALGIA [None]
  - DEHYDRATION [None]
  - EATING DISORDER SYMPTOM [None]
  - SPLENOMEGALY [None]
  - VOMITING [None]
